FAERS Safety Report 14151447 (Version 2)
Quarter: 2017Q4

REPORT INFORMATION
  Report Type: Spontaneous
  Country: US (occurrence: US)
  Receive Date: 20171102
  Receipt Date: 20171208
  Transmission Date: 20180321
  Serious: No
  Sender: FDA-Public Use
  Company Number: US-PFIZER INC-2017467693

PATIENT
  Age: 62 Year
  Sex: Female
  Weight: 60.77 kg

DRUGS (1)
  1. EUCRISA [Suspect]
     Active Substance: CRISABOROLE
     Indication: ECZEMA
     Dosage: (2 PERCENT, 60 GRAM TUBE) APPLY DAILY
     Dates: start: 20171016, end: 20171018

REACTIONS (2)
  - Burning sensation [Recovered/Resolved]
  - Drug ineffective [Unknown]

NARRATIVE: CASE EVENT DATE: 20171016
